FAERS Safety Report 5378616-8 (Version None)
Quarter: 2007Q3

REPORT INFORMATION
  Report Type: 
  Country: None (occurrence: None)
  Receive Date: 20070705
  Receipt Date: 20070626
  Transmission Date: 20080115
  Serious: Yes (Death)
  Sender: FDA-Public Use
  Company Number: US-ROCHE-497288

PATIENT
  Sex: Female

DRUGS (2)
  1. BONIVA [Suspect]
     Indication: DRUG USE FOR UNKNOWN INDICATION
     Route: 065
     Dates: end: 20060301
  2. UNSPECIFIED MEDICATIONS [Concomitant]
     Dates: end: 20060301

REACTIONS (2)
  - BLOOD COUNT ABNORMAL [None]
  - COLON CANCER METASTATIC [None]
